FAERS Safety Report 5882255-X (Version None)
Quarter: 2008Q3

REPORT INFORMATION
  Report Type: 
  Country: None (occurrence: None)
  Receive Date: 20080912
  Receipt Date: 20080806
  Transmission Date: 20090109
  Serious: No
  Sender: FDA-Public Use
  Company Number: US-ABBOTT-08P-163-0467794-00

PATIENT
  Sex: Male
  Weight: 72.64 kg

DRUGS (2)
  1. HUMIRA [Suspect]
     Indication: CROHN'S DISEASE
     Route: 058
     Dates: start: 20080714
  2. HUMIRA [Suspect]

REACTIONS (4)
  - HYPOAESTHESIA [None]
  - PAIN [None]
  - PAIN IN EXTREMITY [None]
  - PARAESTHESIA [None]
